FAERS Safety Report 4305350-5 (Version None)
Quarter: 2004Q1

REPORT INFORMATION
  Report Type: 
  Country: None (occurrence: None)
  Receive Date: 20040226
  Receipt Date: 20030708
  Transmission Date: 20041129
  Serious: Yes (Hospitalization)
  Sender: FDA-Public Use
  Company Number: US-BRISTOL-MYERS SQUIBB COMPANY-12320362

PATIENT
  Age: 52 Year
  Sex: Female
  Weight: 80 kg

DRUGS (6)
  1. TAXOL [Suspect]
     Indication: BREAST CANCER
     Route: 042
     Dates: start: 20030623, end: 20030623
  2. CARBOPLATIN [Suspect]
     Indication: BREAST CANCER
     Dosage: AUC=6
     Route: 042
     Dates: start: 20030623, end: 20030623
  3. DEXAMETHASONE [Concomitant]
     Indication: PREMEDICATION
     Route: 042
     Dates: start: 20030623, end: 20030623
  4. DIPHENHYDRAMINE HCL [Concomitant]
     Indication: PREMEDICATION
     Route: 042
     Dates: start: 20030623, end: 20030623
  5. RANITIDINE [Concomitant]
     Indication: PREMEDICATION
     Route: 042
     Dates: start: 20030623, end: 20030623
  6. ZOFRAN [Concomitant]
     Indication: PREMEDICATION
     Dosage: FOR 5 DAYS POST CHEMOTHERAPY
     Route: 042
     Dates: start: 20030623, end: 20030623

REACTIONS (3)
  - ALANINE AMINOTRANSFERASE INCREASED [None]
  - ASPARTATE AMINOTRANSFERASE INCREASED [None]
  - PYREXIA [None]
